FAERS Safety Report 11433290 (Version 1)
Quarter: 2015Q3

REPORT INFORMATION
  Report Type: Spontaneous
  Country: US (occurrence: US)
  Receive Date: 20150830
  Receipt Date: 20150830
  Transmission Date: 20151125
  Serious: No
  Sender: FDA-Public Use
  Company Number: US-CAREFUSION 213 LLC-1041481

PATIENT
  Sex: Male

DRUGS (1)
  1. CHLORAPREP ONE-STEP SEPP [Suspect]
     Active Substance: CHLORHEXIDINE GLUCONATE\ISOPROPYL ALCOHOL
     Indication: PREOPERATIVE CARE
     Route: 061
     Dates: start: 20140514, end: 20140514

REACTIONS (3)
  - Wound [Unknown]
  - Application site haemorrhage [Unknown]
  - Occupational exposure to product [None]

NARRATIVE: CASE EVENT DATE: 20140514
